FAERS Safety Report 5930809-4 (Version None)
Quarter: 2008Q4

REPORT INFORMATION
  Report Type: 
  Country: None (occurrence: None)
  Receive Date: 20081027
  Receipt Date: 20081014
  Transmission Date: 20090506
  Serious: Yes (Hospitalization, Other)
  Sender: FDA-Public Use
  Company Number: US-ROCHE-591370

PATIENT
  Sex: Female

DRUGS (20)
  1. RIBAVIRIN [Suspect]
     Indication: DRUG USE FOR UNKNOWN INDICATION
     Route: 065
     Dates: start: 20071011, end: 20080709
  2. PEG-INTERFERON ALFA 2B [Suspect]
     Indication: DRUG USE FOR UNKNOWN INDICATION
     Dosage: DRUG NAME: PEGYLATED INTERFERON ALFA-2B
     Route: 065
     Dates: start: 20071011, end: 20080709
  3. PROCRIT [Suspect]
     Indication: ANAEMIA
     Route: 058
     Dates: start: 20071213
  4. PROCRIT [Suspect]
     Route: 058
     Dates: start: 20071228
  5. PROCRIT [Suspect]
     Route: 058
     Dates: start: 20080301
  6. PROCRIT [Suspect]
     Route: 058
     Dates: end: 20080714
  7. DIPHENHYDRAMINE HYDROCHLORIDE [Concomitant]
  8. PROMETHAZINE HCL [Concomitant]
  9. VALGANCICLOVIR HCL [Concomitant]
  10. ESOMEPRAZOLE MAGNESIUM [Concomitant]
  11. CIPROFLOXACIN HYDROCHLORIDE [Concomitant]
  12. CELEXA [Concomitant]
  13. METOCLOPRAMIDE [Concomitant]
  14. PIPERACILLIN AND TAZOBACTAM [Concomitant]
     Dosage: DRUG MANE: PIPERACILLIN + TAZOBACTUM SODIUM
  15. RANITIDINE [Concomitant]
  16. VANCOMYCIN HYDROCHLORIDE [Concomitant]
  17. MAALOX [Concomitant]
  18. TACROLIMUS [Concomitant]
     Dates: start: 20070517
  19. MYCOPHENOLATE MOFETIL [Concomitant]
     Dates: start: 20070517, end: 20080425
  20. ACETAMINOPHEN [Concomitant]

REACTIONS (4)
  - APLASIA PURE RED CELL [None]
  - HEPATIC FAILURE [None]
  - KLEBSIELLA SEPSIS [None]
  - PARVOVIRUS B19 SEROLOGY POSITIVE [None]
